FAERS Safety Report 16810639 (Version 1)
Quarter: 2019Q3

REPORT INFORMATION
  Report Type: Spontaneous
  Country: US (occurrence: US)
  Receive Date: 20190916
  Receipt Date: 20190916
  Transmission Date: 20191005
  Serious: Yes (Hospitalization)
  Sender: FDA-Public Use
  Company Number: US-RISING PHARMACEUTICALS, INC.-2019RIS00484

PATIENT
  Age: 23 Year
  Sex: Female

DRUGS (2)
  1. LEVOFLOXACIN. [Suspect]
     Active Substance: LEVOFLOXACIN
     Route: 065
  2. METRONIDAZOLE. [Suspect]
     Active Substance: METRONIDAZOLE
     Indication: TOOTH ABSCESS
     Route: 065

REACTIONS (1)
  - Psychotic disorder [Recovered/Resolved]
